FAERS Safety Report 17443978 (Version 2)
Quarter: 2020Q2

REPORT INFORMATION
  Report Type: Report from Study
  Country: None (occurrence: US)
  Receive Date: 20200221
  Receipt Date: 20200523
  Transmission Date: 20200713
  Serious: Yes (Other)
  Sender: FDA-Public Use
  Company Number: US-ABBVIE-19K-163-2924888-00

PATIENT
  Age: 58 Year
  Sex: Male

DRUGS (3)
  1. HUMIRA [Suspect]
     Active Substance: ADALIMUMAB
     Route: 058
     Dates: start: 20200212
  2. HUMIRA [Suspect]
     Active Substance: ADALIMUMAB
     Indication: RHEUMATOID ARTHRITIS
     Route: 058
     Dates: start: 201908, end: 201911
  3. HUMIRA [Suspect]
     Active Substance: ADALIMUMAB
     Route: 058
     Dates: start: 201911, end: 202001

REACTIONS (23)
  - Hyperhidrosis [Unknown]
  - Arthralgia [Recovered/Resolved]
  - Headache [Unknown]
  - Paraesthesia [Unknown]
  - Gait disturbance [Unknown]
  - Dyspnoea [Unknown]
  - Gait disturbance [Recovered/Resolved]
  - Chills [Unknown]
  - Joint swelling [Unknown]
  - Feeling hot [Unknown]
  - Haemoglobin decreased [Recovering/Resolving]
  - Joint stiffness [Unknown]
  - Loss of personal independence in daily activities [Recovered/Resolved]
  - Pain [Not Recovered/Not Resolved]
  - Hip arthroplasty [Unknown]
  - Procedural pain [Unknown]
  - Vomiting [Unknown]
  - Joint swelling [Recovered/Resolved]
  - Arthralgia [Unknown]
  - Procedural haemorrhage [Unknown]
  - Hip arthroplasty [Unknown]
  - Loss of personal independence in daily activities [Unknown]
  - Nausea [Unknown]

NARRATIVE: CASE EVENT DATE: 2019
